FAERS Safety Report 23769843 (Version 2)
Quarter: 2024Q2

REPORT INFORMATION
  Report Type: Spontaneous
  Country: IL (occurrence: IL)
  Receive Date: 20240422
  Receipt Date: 20240501
  Transmission Date: 20240716
  Serious: Yes (Other)
  Sender: FDA-Public Use
  Company Number: IL-AMERICAN REGENT INC-2024001444

PATIENT
  Age: 50 Year
  Sex: Female

DRUGS (2)
  1. FERINJECT [Suspect]
     Active Substance: FERRIC CARBOXYMALTOSE
     Indication: Product used for unknown indication
     Dosage: 1000 MILLIGRAM, 1 IN 1 WK
     Route: 042
     Dates: start: 20240401, end: 20240401
  2. LIPITOR [Concomitant]
     Active Substance: ATORVASTATIN CALCIUM
     Indication: Product used for unknown indication
     Dosage: UNK
     Route: 065

REACTIONS (8)
  - Muscle spasms [Unknown]
  - Asthenia [Unknown]
  - Presyncope [Unknown]
  - Dizziness [Unknown]
  - Nausea [Unknown]
  - Blood pressure decreased [Unknown]
  - Headache [Unknown]
  - Pyrexia [Unknown]

NARRATIVE: CASE EVENT DATE: 20240401
